FAERS Safety Report 8614788-7 (Version None)
Quarter: 2012Q3

REPORT INFORMATION
  Report Type: 
  Country: None (occurrence: None)
  Receive Date: 20120823
  Receipt Date: 20120821
  Transmission Date: 20120928
  Serious: Yes (Other)
  Sender: FDA-Public Use
  Company Number: US-PFIZER INC-2012205212

PATIENT
  Age: 26 Year
  Sex: Male

DRUGS (2)
  1. ZOLOFT [Suspect]
     Indication: DEPRESSION
     Dosage: 100 MG TWICE IN THE MORNING
  2. EFFEXOR XR [Suspect]
     Indication: DEPRESSION
     Dosage: 150 MG 2 IN THE MORNING, 1 AT BEDTIME

REACTIONS (3)
  - DEPRESSION [None]
  - INTENTIONAL SELF-INJURY [None]
  - BRAIN INJURY [None]
